FAERS Safety Report 20653200 (Version 2)
Quarter: 2022Q2

REPORT INFORMATION
  Report Type: Spontaneous
  Country: JP (occurrence: JP)
  Receive Date: 20220330
  Receipt Date: 20220620
  Transmission Date: 20220721
  Serious: Yes (Hospitalization, Other)
  Sender: FDA-Public Use
  Company Number: JP-GLAXOSMITHKLINE-JP2022GSK053298

PATIENT

DRUGS (9)
  1. EPOPROSTENOL [Suspect]
     Active Substance: EPOPROSTENOL
     Indication: Pulmonary hypertension
     Dosage: UNK (GRADUALLLY INCREASING )
     Route: 042
  2. EPOPROSTENOL [Suspect]
     Active Substance: EPOPROSTENOL
     Dosage: UNK (DOSE REDUCED)
     Route: 042
  3. AZATHIOPRINE [Suspect]
     Active Substance: AZATHIOPRINE
     Indication: Steroid therapy
     Dosage: UNK
  4. CYCLOPHOSPHAMIDE [Concomitant]
     Active Substance: CYCLOPHOSPHAMIDE
     Indication: Steroid therapy
     Dosage: UNK
  5. BERAPROST SODIUM [Concomitant]
     Active Substance: BERAPROST SODIUM
     Indication: Pulmonary hypertension
     Dosage: UNK
  6. BOSENTAN [Concomitant]
     Active Substance: BOSENTAN
     Indication: Pulmonary hypertension
     Dosage: UNK
  7. MACITENTAN [Concomitant]
     Active Substance: MACITENTAN
     Indication: Pulmonary hypertension
     Dosage: UNK
  8. SELEXIPAG [Concomitant]
     Active Substance: SELEXIPAG
     Indication: Pulmonary hypertension
     Dosage: UNK (GRADUALLY INCREASING)
  9. SELEXIPAG [Concomitant]
     Active Substance: SELEXIPAG
     Dosage: UNK (TAPPERER DOSE)

REACTIONS (28)
  - Ascites [Recovered/Resolved]
  - Portopulmonary hypertension [Recovering/Resolving]
  - Vasodilatation [Unknown]
  - Vascular shunt [Recovering/Resolving]
  - Thrombocytopenia [Unknown]
  - Pulmonary artery dilatation [Unknown]
  - Hepatic vein dilatation [Unknown]
  - Portal vein dilatation [Unknown]
  - Varicose veins of abdominal wall [Unknown]
  - Splenorenal shunt [Recovering/Resolving]
  - Gastric varices [Unknown]
  - Varices oesophageal [Unknown]
  - Collateral circulation [Recovering/Resolving]
  - Abdominal distension [Recovered/Resolved]
  - Decreased appetite [Recovered/Resolved]
  - Weight increased [Recovering/Resolving]
  - Hepatosplenomegaly [Unknown]
  - Hepatic fibrosis [Unknown]
  - Portal fibrosis [Unknown]
  - Hepatic function abnormal [Unknown]
  - Hepatitis chronic active [Unknown]
  - Autoimmune hepatitis [Unknown]
  - Lung opacity [Unknown]
  - Congestive hepatopathy [Unknown]
  - Pulmonary hypertension [Recovered/Resolved]
  - Sinus tachycardia [Unknown]
  - Heart valve incompetence [Unknown]
  - Bundle branch block right [Unknown]
